FAERS Safety Report 12669097 (Version 1)
Quarter: 2016Q3

REPORT INFORMATION
  Report Type: Spontaneous
  Country: JP (occurrence: JP)
  Receive Date: 20160820
  Receipt Date: 20160820
  Transmission Date: 20161109
  Serious: Yes (Life-Threatening, Other)
  Sender: FDA-Public Use
  Company Number: JP-ASTRAZENECA-2016SE89277

PATIENT
  Age: 40 Year
  Sex: Male
  Weight: 68 kg

DRUGS (6)
  1. SEROQUEL [Suspect]
     Active Substance: QUETIAPINE FUMARATE
     Route: 048
     Dates: start: 201607, end: 201607
  2. SEROQUEL [Suspect]
     Active Substance: QUETIAPINE FUMARATE
     Route: 048
  3. HYPNOTIC DRUG [Concomitant]
  4. ANTIANXIETY DRUG [Concomitant]
  5. PSYCHONEUROTIC DRUG [Concomitant]
  6. ANTIDEPRESSANT DRUG [Concomitant]
     Active Substance: UNSPECIFIED INGREDIENT

REACTIONS (5)
  - Intentional overdose [Unknown]
  - Disturbance in attention [Not Recovered/Not Resolved]
  - Somnolence [Not Recovered/Not Resolved]
  - Suicide attempt [Unknown]
  - Somatic hallucination [Not Recovered/Not Resolved]

NARRATIVE: CASE EVENT DATE: 201607
